FAERS Safety Report 9896457 (Version 2)
Quarter: 2014Q1

REPORT INFORMATION
  Report Type: Spontaneous
  Country: US (occurrence: US)
  Receive Date: 20140213
  Receipt Date: 20140213
  Transmission Date: 20141002
  Serious: No
  Sender: FDA-Public Use
  Company Number: US-BRISTOL-MYERS SQUIBB COMPANY-17448564

PATIENT
  Age: 68 Year
  Sex: Female
  Weight: 75.28 kg

DRUGS (34)
  1. ORENCIA [Suspect]
     Indication: RHEUMATOID ARTHRITIS
     Dosage: LAST INF:26FEB2013, 2/5/13?750MG IN 100ML NS TO INFUSE OVER 30 MINS;IV CATH?714.0
     Route: 042
     Dates: start: 20130212
  2. PRAVASTATINE TABS [Concomitant]
  3. LEVSIN [Concomitant]
     Dosage: LEVSIN SUBL 0.125MG 1 TABS/4PER DAY
  4. WELLBUTRIN XL [Concomitant]
  5. PROTONIX [Concomitant]
     Dosage: TABS
  6. RANITIDINE HCL TABS 300MG [Concomitant]
     Dosage: 1 TABS AT BEDTIME
  7. PROGESTERONE [Concomitant]
     Dosage: CREAM?HALF ML AT BED TIME
  8. FIORICET [Concomitant]
  9. FLONASE [Concomitant]
     Dosage: 2 TIMES IN EACH NOSTRILS
     Route: 045
  10. METHOTREXATE [Concomitant]
     Dosage: 1 SHOT EACH WEEK /TUESDAY
  11. LEUCOVORIN CALCIUM TABS [Concomitant]
  12. PLAQUENIL [Concomitant]
     Dosage: 2TABS @BEDTIME
  13. CELEBREX [Concomitant]
     Dosage: TABS; 1 AM AND 1 PM
  14. SKELAXIN [Concomitant]
     Dosage: 1 TABS @ BEDTIME
  15. PREDNISONE [Concomitant]
  16. MEDROL [Concomitant]
  17. TRIAMCINOLONE ACETONIDE [Concomitant]
  18. CLINDAMYCIN [Concomitant]
     Dosage: PHOS LOTION, AM+PM
  19. FINACEA [Concomitant]
     Dosage: GEL
  20. HYALURONIC ACID [Concomitant]
     Dosage: GEL OR CREAM
  21. MULTIPLE VITAMINS [Concomitant]
  22. FOLIC ACID [Concomitant]
  23. CALCIUM [Concomitant]
  24. VITAMIN B12 [Concomitant]
     Dosage: SUBL
  25. BLACK COHOSH [Concomitant]
  26. COQ10 [Concomitant]
  27. FLAXSEED OIL [Concomitant]
  28. FISH OIL [Concomitant]
  29. DHEA [Concomitant]
  30. MAGNESIUM [Concomitant]
  31. ZINC [Concomitant]
  32. VITAMIN D [Concomitant]
  33. MILK THISTLE [Concomitant]
  34. EVENING PRIMROSE OIL [Concomitant]

REACTIONS (4)
  - Diarrhoea [Recovered/Resolved]
  - Fatigue [Recovered/Resolved]
  - Breast pain [Not Recovered/Not Resolved]
  - Muscular weakness [Not Recovered/Not Resolved]
